FAERS Safety Report 16038137 (Version 1)
Quarter: 2019Q1

REPORT INFORMATION
  Report Type: Spontaneous
  Country: GB (occurrence: GB)
  Receive Date: 20190305
  Receipt Date: 20190305
  Transmission Date: 20190418
  Serious: Yes (Other)
  Sender: FDA-Public Use
  Company Number: GB-MYLANLABS-2019M1019627

PATIENT
  Age: 70 Year
  Sex: Female
  Weight: 61 kg

DRUGS (2)
  1. ACICLOVIR [Suspect]
     Active Substance: ACYCLOVIR
     Indication: HERPES ZOSTER
     Dosage: 800 MILLIGRAM
     Route: 048
     Dates: start: 20190201, end: 20190206
  2. AMOXICILLIN                        /00249602/ [Concomitant]
     Active Substance: AMOXICILLIN
     Dosage: UNK
     Route: 065
     Dates: start: 201901

REACTIONS (7)
  - Feeling hot [Not Recovered/Not Resolved]
  - Diarrhoea [Recovering/Resolving]
  - Erythema [Not Recovered/Not Resolved]
  - Headache [Recovering/Resolving]
  - Malaise [Unknown]
  - Tremor [Recovered/Resolved]
  - Pruritus generalised [Recovering/Resolving]

NARRATIVE: CASE EVENT DATE: 20190202
